FAERS Safety Report 5445030-6 (Version None)
Quarter: 2007Q3

REPORT INFORMATION
  Report Type: 
  Country: None (occurrence: None)
  Receive Date: 20070906
  Receipt Date: 20070828
  Transmission Date: 20080115
  Serious: Yes (Hospitalization)
  Sender: FDA-Public Use
  Company Number: US-BAXTER-2007BH002985

PATIENT
  Age: 18 Year
  Sex: Female

DRUGS (2)
  1. GAMMAGARD S/D [Suspect]
     Indication: THROMBOCYTOPENIA
     Route: 042
     Dates: start: 20070313, end: 20070313
  2. GAMMAGARD S/D [Suspect]
     Route: 042
     Dates: start: 20070313, end: 20070313

REACTIONS (1)
  - MENINGITIS ASEPTIC [None]
